FAERS Safety Report 5915386-6 (Version None)
Quarter: 2008Q4

REPORT INFORMATION
  Report Type: 
  Country: None (occurrence: None)
  Receive Date: 20081010
  Receipt Date: 20080929
  Transmission Date: 20090506
  Serious: Yes (Death)
  Sender: FDA-Public Use
  Company Number: JP-ROCHE-577112

PATIENT
  Sex: Female
  Weight: 47 kg

DRUGS (7)
  1. PEGASYS [Suspect]
     Indication: HEPATITIS C
     Dosage: DOSE: DECREASED
     Route: 058
     Dates: start: 20070223, end: 20070223
  2. PEGASYS [Suspect]
     Route: 058
     Dates: start: 20070302, end: 20070302
  3. PEGASYS [Suspect]
     Route: 058
     Dates: start: 20070316, end: 20071026
  4. PEGASYS [Suspect]
     Route: 058
     Dates: start: 20071108, end: 20071130
  5. PEGASYS [Suspect]
     Route: 058
     Dates: start: 20071212, end: 20080711
  6. BEPRICOR [Concomitant]
     Route: 048
     Dates: end: 20080718
  7. WARFARIN SODIUM [Concomitant]
     Route: 048
     Dates: end: 20080718

REACTIONS (2)
  - CEREBRAL HAEMORRHAGE [None]
  - THROMBOTIC THROMBOCYTOPENIC PURPURA [None]
